FAERS Safety Report 5896593-8 (Version None)
Quarter: 2008Q3

REPORT INFORMATION
  Report Type: 
  Country: None (occurrence: None)
  Receive Date: 20080924
  Receipt Date: 20080912
  Transmission Date: 20090109
  Serious: Yes (Other)
  Sender: FDA-Public Use
  Company Number: US-PFIZER INC-2008077320

PATIENT
  Sex: Female
  Weight: 86.363 kg

DRUGS (4)
  1. DILANTIN [Suspect]
     Indication: ANEURYSM
     Dates: start: 19810101
  2. PHENOBARBITAL TAB [Concomitant]
  3. RANITIDINE [Concomitant]
  4. SIMVASTATIN [Concomitant]

REACTIONS (5)
  - BLOOD TEST ABNORMAL [None]
  - CEREBROVASCULAR ACCIDENT [None]
  - CONVULSION [None]
  - HEART RATE INCREASED [None]
  - SWELLING [None]
